FAERS Safety Report 6893596-1 (Version None)
Quarter: 2010Q3

REPORT INFORMATION
  Report Type: 
  Country: None (occurrence: None)
  Receive Date: 20100731
  Receipt Date: 20091020
  Transmission Date: 20110219
  Serious: Yes (Hospitalization)
  Sender: FDA-Public Use
  Company Number: US-PFIZER INC-2009215339

PATIENT
  Sex: Male
  Weight: 71 kg

DRUGS (7)
  1. LIPITOR [Suspect]
     Indication: BLOOD CHOLESTEROL INCREASED
     Dosage: 10 MG, 1X/DAY
     Route: 048
     Dates: start: 20040501, end: 20080904
  2. GLUCOTROL [Concomitant]
     Dosage: 5 MG, 1X/DAY
  3. GLUCOPHAGE [Concomitant]
     Dosage: 1000 MG, 2X/DAY
  4. TOPROL-XL [Concomitant]
     Dosage: 150 MG, 1X/DAY
  5. LISINOPRIL [Concomitant]
     Dosage: 10 MG, 1X/DAY
  6. ASPIRIN [Concomitant]
     Dosage: 81 MG, 1X/DAY
  7. ATIVAN [Concomitant]
     Dosage: 0.5 MG, 2X/DAY

REACTIONS (6)
  - ABDOMINAL PAIN UPPER [None]
  - CHROMATURIA [None]
  - FATIGUE [None]
  - JAUNDICE [None]
  - NAUSEA [None]
  - PRURITUS [None]
